FAERS Safety Report 22296729 (Version 1)
Quarter: 2023Q2

REPORT INFORMATION
  Report Type: Spontaneous
  Country: US (occurrence: US)
  Receive Date: 20230509
  Receipt Date: 20230509
  Transmission Date: 20230721
  Serious: Yes (Other)
  Sender: FDA-Public Use
  Company Number: US-BRISTOL-MYERS SQUIBB COMPANY-2023-063033

PATIENT
  Age: 63 Year
  Sex: Female

DRUGS (1)
  1. REVLIMID [Suspect]
     Active Substance: LENALIDOMIDE
     Indication: Plasma cell myeloma
     Dosage: FREQUENCY: TAKE 1 CAPSULE BY MOUTH EVERY SATURDAY AND SUNDAY OF EACH
     Route: 048
     Dates: start: 20230112

REACTIONS (4)
  - Cough [Recovered/Resolved]
  - Wheezing [Recovered/Resolved]
  - Muscle spasms [Not Recovered/Not Resolved]
  - Off label use [Unknown]
